FAERS Safety Report 4808698-0 (Version None)
Quarter: 2005Q4

REPORT INFORMATION
  Report Type: 
  Country: None (occurrence: None)
  Receive Date: 20051025
  Receipt Date: 20000619
  Transmission Date: 20060501
  Serious: Yes (Death, Hospitalization)
  Sender: FDA-Public Use
  Company Number: GB-SOLVAY-00205003307

PATIENT
  Age: 30085 Day
  Sex: Female
  Weight: 42 kg

DRUGS (1)
  1. PERINDOPRIL ERBUMINE [Suspect]
     Indication: CARDIAC FAILURE CONGESTIVE
     Dosage: DAILY DOSE: 4 MILLIGRAM(S)
     Route: 048
     Dates: start: 20000321, end: 20000526

REACTIONS (6)
  - BRONCHIAL NEOPLASM [None]
  - CARDIAC FAILURE [None]
  - CHRONIC OBSTRUCTIVE PULMONARY DISEASE [None]
  - SEPSIS [None]
  - SHOCK [None]
  - URINARY TRACT INFECTION [None]
